FAERS Safety Report 7903121-1 (Version None)
Quarter: 2011Q4

REPORT INFORMATION
  Report Type: 
  Country: None (occurrence: None)
  Receive Date: 20111109
  Receipt Date: 20111031
  Transmission Date: 20120403
  Serious: Yes (Other)
  Sender: FDA-Public Use
  Company Number: CA-BRISTOL-MYERS SQUIBB COMPANY-15178023

PATIENT
  Age: 50 Year
  Sex: Female

DRUGS (10)
  1. NEXIUM [Concomitant]
  2. ACETAMINOPHEN [Concomitant]
  3. PREDNISONE [Concomitant]
  4. CELEBREX [Concomitant]
  5. ENBREL [Concomitant]
  6. MICARDIS [Concomitant]
  7. ORENCIA [Suspect]
     Indication: RHEUMATOID ARTHRITIS
     Dosage: LAST DOSE:13DEC10,03OCT11,24,NO OF INF:34.
     Route: 042
     Dates: start: 20090402
  8. METHOTREXATE [Concomitant]
  9. SINGULAIR [Concomitant]
  10. MAXALT [Concomitant]

REACTIONS (2)
  - ASTHMA [None]
  - BRONCHITIS [None]
